FAERS Safety Report 5294604-4 (Version None)
Quarter: 2007Q2

REPORT INFORMATION
  Report Type: 
  Country: None (occurrence: None)
  Receive Date: 20070412
  Receipt Date: 20070406
  Transmission Date: 20071010
  Serious: Yes (Other)
  Sender: FDA-Public Use
  Company Number: US-GLAXOSMITHKLINE-A0646180A

PATIENT
  Age: 52 Year
  Sex: Male
  Weight: 72.7 kg

DRUGS (6)
  1. PAXIL [Suspect]
     Indication: DEPRESSION
     Route: 048
     Dates: start: 19930101, end: 20030101
  2. WELLBUTRIN XL [Suspect]
     Indication: DEPRESSION
     Dosage: 150MG PER DAY
     Route: 048
     Dates: start: 20061101
  3. XANAX [Concomitant]
  4. RESTORIL [Concomitant]
  5. PAIN MEDICATIONS [Concomitant]
  6. FLOMAX [Concomitant]

REACTIONS (18)
  - AGGRESSION [None]
  - CALCULUS PROSTATIC [None]
  - CRYING [None]
  - DRUG INEFFECTIVE [None]
  - DRUG WITHDRAWAL SYNDROME [None]
  - DYSURIA [None]
  - EJACULATION FAILURE [None]
  - HEADACHE [None]
  - LIBIDO DECREASED [None]
  - MOOD SWINGS [None]
  - PROSTATIC MASS [None]
  - PROSTATITIS [None]
  - SUICIDAL IDEATION [None]
  - URINARY HESITATION [None]
  - VISION BLURRED [None]
  - VISUAL DISTURBANCE [None]
  - WEIGHT DECREASED [None]
  - WEIGHT INCREASED [None]
